FAERS Safety Report 16395261 (Version 1)
Quarter: 2019Q2

REPORT INFORMATION
  Report Type: Spontaneous
  Country: US (occurrence: US)
  Receive Date: 20190605
  Receipt Date: 20190605
  Transmission Date: 20190711
  Serious: Yes (Hospitalization, Other)
  Sender: FDA-Public Use
  Company Number: US-UCBSA-2019023249

PATIENT
  Age: 61 Year
  Sex: Female

DRUGS (1)
  1. LACOSAMIDE. [Suspect]
     Active Substance: LACOSAMIDE
     Indication: SEIZURE
     Dosage: HANDFUL OF 200 MG TABLETS
     Route: 048

REACTIONS (2)
  - Toxicity to various agents [Unknown]
  - Intentional product misuse [Unknown]
